FAERS Safety Report 9289426 (Version 1)
Quarter: 2013Q2

REPORT INFORMATION
  Report Type: Spontaneous
  Country: US (occurrence: US)
  Receive Date: 20130514
  Receipt Date: 20130514
  Transmission Date: 20140414
  Serious: No
  Sender: FDA-Public Use
  Company Number: US-009507513-1305USA006221

PATIENT
  Age: 30 Year
  Sex: Female

DRUGS (3)
  1. SAPHRIS [Suspect]
     Indication: BIPOLAR I DISORDER
     Dosage: 5 MG, HS
     Route: 060
     Dates: start: 201304
  2. SAPHRIS [Suspect]
     Dosage: 10 MG, HS
     Route: 060
     Dates: end: 201305
  3. LAMICTAL [Concomitant]
     Dosage: UNK

REACTIONS (7)
  - Agitation [Unknown]
  - Irritability [Unknown]
  - Dysgeusia [Unknown]
  - Drug ineffective [Unknown]
  - Product taste abnormal [Unknown]
  - Underdose [Unknown]
  - Inappropriate schedule of drug administration [Unknown]
